FAERS Safety Report 7832071-4 (Version None)
Quarter: 2011Q4

REPORT INFORMATION
  Report Type: 
  Country: None (occurrence: None)
  Receive Date: 20111022
  Receipt Date: 20111018
  Transmission Date: 20120403
  Serious: Yes (Other)
  Sender: FDA-Public Use
  Company Number: US-BAYER-2011-100758

PATIENT
  Sex: Male

DRUGS (2)
  1. ASPIRIN [Suspect]
     Indication: CARDIAC OPERATION
     Dosage: UNK UNK, QD
     Route: 048
  2. ADVIL PM [Suspect]
     Route: 048

REACTIONS (1)
  - HAEMATOCHEZIA [None]
